FAERS Safety Report 11750393 (Version 1)
Quarter: 2015Q4

REPORT INFORMATION
  Report Type: Spontaneous
  Country: IT (occurrence: IT)
  Receive Date: 20151118
  Receipt Date: 20151118
  Transmission Date: 20160304
  Serious: Yes (Other)
  Sender: FDA-Public Use
  Company Number: IT-BAYER-2015-462810

PATIENT

DRUGS (3)
  1. PLAVIX [Interacting]
     Active Substance: CLOPIDOGREL BISULFATE
     Indication: ANTIPLATELET THERAPY
     Dosage: 75 MG, UNK
  2. ACETYLSALICYLIC ACID (} 100 MG) [Suspect]
     Active Substance: ASPIRIN
     Indication: ANTIPLATELET THERAPY
     Dosage: 300 MG, UNK
  3. ABCIXIMAB [Interacting]
     Active Substance: ABCIXIMAB
     Dosage: 0.25 MG/KG, UNK
     Route: 040

REACTIONS (4)
  - Thrombosis [None]
  - Labelled drug-drug interaction medication error [None]
  - Drug ineffective [None]
  - Intracranial pressure increased [None]
